FAERS Safety Report 6011130-5 (Version None)
Quarter: 2008Q4

REPORT INFORMATION
  Report Type: 
  Country: None (occurrence: None)
  Receive Date: 20081217
  Receipt Date: 20081217
  Transmission Date: 20090506
  Serious: Yes (Other)
  Sender: FDA-Public Use
  Company Number: None

PATIENT
  Age: 53 Year
  Sex: Male
  Weight: 71.7 kg

DRUGS (22)
  1. LINEZOLID [Suspect]
     Indication: INFECTION
     Dosage: 600MG BID IV
     Route: 042
     Dates: start: 20081206, end: 20081211
  2. BUPROPION HCL [Suspect]
     Indication: DEPRESSION
     Dosage: 100MG BID PO
     Route: 048
     Dates: start: 20081115, end: 20081211
  3. INSULIN ASPART [Concomitant]
  4. ACETAMINOPHEN [Concomitant]
  5. ACTIVASE [Concomitant]
  6. FENTANYL-100 [Concomitant]
  7. HEPARIN [Concomitant]
  8. LORAZEPAM [Concomitant]
  9. NALOXONE [Concomitant]
  10. ONDANSETRON [Concomitant]
  11. OXYCODONE [Concomitant]
  12. POTASSIUM CHLORIDE [Concomitant]
  13. PROCHLORPERAZINE [Concomitant]
  14. SCOPOLAMINE [Concomitant]
  15. CALCIUM GLUCONATE [Concomitant]
  16. MAGNESIUM SULFATE [Concomitant]
  17. CELLCEPT [Concomitant]
  18. METOPROLOL TARTRATE [Concomitant]
  19. POSACONAZOLE [Concomitant]
  20. PREDNISONE [Concomitant]
  21. SIROLIMUS [Concomitant]
  22. TACROLIMUS [Concomitant]

REACTIONS (1)
  - SEROTONIN SYNDROME [None]
